FAERS Safety Report 24737465 (Version 1)
Quarter: 2024Q4

REPORT INFORMATION
  Report Type: Spontaneous
  Country: CO (occurrence: CO)
  Receive Date: 20241216
  Receipt Date: 20241216
  Transmission Date: 20250115
  Serious: Yes (Hospitalization, Other)
  Sender: REGENERON
  Company Number: CO-SA-2024SA366890

PATIENT
  Age: 67 Year
  Sex: Male

DRUGS (1)
  1. PRALUENT [Suspect]
     Active Substance: ALIROCUMAB
     Indication: Hypercholesterolaemia
     Dosage: 150 MG, QOW
     Route: 058
     Dates: start: 2020

REACTIONS (4)
  - Infarction [Recovering/Resolving]
  - Arrhythmia [Unknown]
  - Chest pain [Unknown]
  - Influenza [Unknown]

NARRATIVE: CASE EVENT DATE: 20240812
